FAERS Safety Report 8011708-3 (Version None)
Quarter: 2011Q4

REPORT INFORMATION
  Report Type: 
  Country: None (occurrence: None)
  Receive Date: 20111228
  Receipt Date: 20111215
  Transmission Date: 20120403
  Serious: Yes (Hospitalization, Other)
  Sender: FDA-Public Use
  Company Number: PHHY2011JP23652

PATIENT
  Sex: Female
  Weight: 41 kg

DRUGS (10)
  1. AZATHIOPRINE [Concomitant]
     Indication: CHRONIC GRAFT VERSUS HOST DISEASE
  2. NEUZYM [Concomitant]
     Dosage: 90 MG, UNK
     Route: 048
  3. MUCODYNE [Concomitant]
     Dosage: 750 MG,
     Route: 048
  4. CANDESARTAN CILEXETIL [Concomitant]
     Dosage: 4 MG, UNK
     Route: 048
  5. NORVASC [Concomitant]
     Dosage: 2.5 MG,
     Route: 048
  6. FAMOTIDINE [Concomitant]
     Dosage: 10 MG, UNK
     Route: 048
  7. PERSANTIN [Concomitant]
     Dosage: 150 MG, UNK
     Route: 048
  8. GLAKAY [Concomitant]
     Dosage: 30 MG, UNK
     Route: 048
  9. NEORAL [Suspect]
     Indication: CHRONIC GRAFT VERSUS HOST DISEASE
     Dosage: 200 MG, DAILY
     Route: 048
  10. PREDNISOLONE [Concomitant]
     Dosage: 5 MG, UNK
     Route: 048

REACTIONS (8)
  - ACUTE MYOCARDIAL INFARCTION [None]
  - DYSLIPIDAEMIA [None]
  - ANGINA PECTORIS [None]
  - LOW DENSITY LIPOPROTEIN INCREASED [None]
  - HYPERTENSION [None]
  - CORONARY ARTERY OCCLUSION [None]
  - CORONARY ARTERY STENOSIS [None]
  - PERICARDIAL EFFUSION [None]
